FAERS Safety Report 23141125 (Version 2)
Quarter: 2023Q4

REPORT INFORMATION
  Report Type: Spontaneous
  Country: US (occurrence: US)
  Receive Date: 20231103
  Receipt Date: 20231107
  Transmission Date: 20240110
  Serious: No
  Sender: FDA-Public Use
  Company Number: US-OPELLA-2023OHG010873

PATIENT

DRUGS (2)
  1. SELSUN BLUE MEDICATED [Suspect]
     Active Substance: SELENIUM SULFIDE
     Indication: Dandruff
     Dosage: DOSAGE STRENGTH:3.25 G/325 ML
  2. SELSUN BLUE MEDICATED [Suspect]
     Active Substance: SELENIUM SULFIDE
     Dosage: DOSAGE STRENGTH:3.25 G/325 ML

REACTIONS (2)
  - Drug ineffective [Unknown]
  - Hair texture abnormal [Unknown]
